FAERS Safety Report 9494474 (Version 1)
Quarter: 2013Q3

REPORT INFORMATION
  Report Type: Report from Study
  Country: US (occurrence: US)
  Receive Date: 20130903
  Receipt Date: 20130903
  Transmission Date: 20140515
  Serious: Yes (Hospitalization)
  Sender: FDA-Public Use
  Company Number: US-ASTELLAS-2013US009140

PATIENT
  Age: 64 Year
  Sex: Male

DRUGS (1)
  1. ERLOTINIB TABLET [Suspect]
     Indication: LUNG NEOPLASM MALIGNANT
     Dosage: 100 MG, UID/QD
     Route: 048

REACTIONS (4)
  - Incorrect dose administered [Unknown]
  - Septic shock [Not Recovered/Not Resolved]
  - Hospitalisation [Recovered/Resolved]
  - Loss of consciousness [Not Recovered/Not Resolved]
